FAERS Safety Report 21838657 (Version 1)
Quarter: 2023Q1

REPORT INFORMATION
  Report Type: Spontaneous
  Country: US (occurrence: None)
  Receive Date: 20230108
  Receipt Date: 20230108
  Transmission Date: 20230418
  Serious: No
  Sender: FDA-Public Use
  Company Number: None

PATIENT
  Age: 15 Year
  Sex: Female
  Weight: 51.75 kg

DRUGS (1)
  1. METHYLPHENIDATE [Suspect]
     Active Substance: METHYLPHENIDATE
     Indication: Attention deficit hyperactivity disorder
     Dates: start: 20230101, end: 20230108

REACTIONS (4)
  - Drug ineffective [None]
  - Disturbance in attention [None]
  - Psychomotor hyperactivity [None]
  - Abnormal behaviour [None]

NARRATIVE: CASE EVENT DATE: 20230106
